FAERS Safety Report 6753082-6 (Version None)
Quarter: 2010Q2

REPORT INFORMATION
  Report Type: 
  Country: None (occurrence: None)
  Receive Date: 20100603
  Receipt Date: 20100527
  Transmission Date: 20101027
  Serious: Yes (Hospitalization, Other)
  Sender: FDA-Public Use
  Company Number: US-BAYER-200934173NA

PATIENT
  Age: 55 Year
  Sex: Male

DRUGS (10)
  1. NEXAVAR [Suspect]
     Indication: HEPATIC NEOPLASM MALIGNANT
     Dosage: TOTAL DAILY DOSE: 800 MG  UNIT DOSE: 200 MG
     Route: 048
     Dates: start: 20090401, end: 20090921
  2. LACTULOSE [Concomitant]
     Indication: HEPATIC CIRRHOSIS
     Dosage: TOTAL DAILY DOSE: 15 ML
     Route: 048
     Dates: end: 20090921
  3. LACTULOSE [Concomitant]
     Dosage: TOTAL DAILY DOSE: 50 ML
     Route: 048
     Dates: end: 20090921
  4. MORPHINE SULFATE [Concomitant]
     Dosage: FOR BREAKTHROUGH PAIN
  5. ALDACTONE [Concomitant]
     Indication: ASCITES
  6. MEGACE [Concomitant]
  7. THORAZINE [Concomitant]
  8. NEURONTIN [Concomitant]
  9. PHENERGAN [Concomitant]
  10. RESTORIL [Concomitant]

REACTIONS (14)
  - ANAEMIA [None]
  - CHOLELITHIASIS [None]
  - CLOSTRIDIUM DIFFICILE COLITIS [None]
  - COAGULOPATHY [None]
  - COLITIS [None]
  - HEPATIC NEOPLASM MALIGNANT [None]
  - HYPERKERATOSIS [None]
  - HYPONATRAEMIA [None]
  - METASTASES TO LUNG [None]
  - NEUROPATHY PERIPHERAL [None]
  - NEUTROPENIA [None]
  - PAIN IN EXTREMITY [None]
  - PSEUDOMEMBRANOUS COLITIS [None]
  - SPLENOMEGALY [None]
